FAERS Safety Report 21030000 (Version 1)
Quarter: 2022Q3

REPORT INFORMATION
  Report Type: Spontaneous
  Country: US (occurrence: None)
  Receive Date: 20220701
  Receipt Date: 20220701
  Transmission Date: 20221027
  Serious: No
  Sender: FDA-Public Use
  Company Number: US-ROCHE-2882280

PATIENT
  Age: 67 Year
  Sex: Female
  Weight: 56.296 kg

DRUGS (2)
  1. ACTEMRA [Suspect]
     Active Substance: TOCILIZUMAB
     Indication: Rheumatoid arthritis
     Dosage: HER LAST DOSE WAS 07/NOV/2021
     Route: 058
     Dates: start: 2017
  2. COVID-19 VACCINE NOS [Suspect]
     Active Substance: COVID-19 VACCINE NOS
     Indication: Product used for unknown indication
     Dosage: SECOND DOSE ON 20/JUL/2021
     Route: 065
     Dates: start: 20210619, end: 20210720

REACTIONS (3)
  - Joint swelling [Unknown]
  - Arthralgia [Recovered/Resolved]
  - Bursitis [Not Recovered/Not Resolved]

NARRATIVE: CASE EVENT DATE: 20211010
